FAERS Safety Report 23063664 (Version 1)
Quarter: 2023Q4

REPORT INFORMATION
  Report Type: Spontaneous
  Country: CN (occurrence: CN)
  Receive Date: 20231013
  Receipt Date: 20231013
  Transmission Date: 20240110
  Serious: Yes (Hospitalization)
  Sender: FDA-Public Use
  Company Number: CN-BAYER-2023A142231

PATIENT
  Age: 55 Year
  Sex: Female
  Weight: 65 kg

DRUGS (2)
  1. GADOBUTROL [Suspect]
     Active Substance: GADOBUTROL
     Indication: Magnetic resonance imaging
     Dosage: 4.535 G, ONCE
     Route: 042
     Dates: start: 20230820, end: 20230820
  2. GADOBUTROL [Suspect]
     Active Substance: GADOBUTROL
     Indication: Nasal sinus cancer

REACTIONS (3)
  - Contrast media allergy [Recovering/Resolving]
  - Rash maculo-papular [Recovering/Resolving]
  - Tachypnoea [Recovering/Resolving]

NARRATIVE: CASE EVENT DATE: 20230820
